FAERS Safety Report 8170137-2 (Version None)
Quarter: 2012Q1

REPORT INFORMATION
  Report Type: 
  Country: None (occurrence: None)
  Receive Date: 20120228
  Receipt Date: 20120220
  Transmission Date: 20120608
  Serious: Yes (Other)
  Sender: FDA-Public Use
  Company Number: PHEH2010US00483

PATIENT
  Sex: Female

DRUGS (27)
  1. COUMADIN [Concomitant]
     Dosage: 1.25 MG, QD
     Route: 048
  2. DEMEROL [Concomitant]
  3. PERCOCET [Concomitant]
  4. REGLAN [Concomitant]
  5. WARFARIN SODIUM [Concomitant]
     Dosage: 2.5 MG, QD
  6. LOVENOX [Concomitant]
     Dosage: 60 MG, BID
     Route: 048
  7. ROSIGLITAZONE MALEATE [Concomitant]
     Dosage: 4 MG, QD
     Route: 048
  8. ZOMETA [Suspect]
  9. LISINOPRIL [Concomitant]
  10. FASLODEX [Concomitant]
  11. FISH OIL [Concomitant]
  12. MINOCYCLINE HCL [Concomitant]
     Dosage: 100 MG, BID
     Route: 048
  13. METFORMIN HCL [Concomitant]
  14. ONDANSETRON [Concomitant]
  15. NEURONTIN [Concomitant]
     Dosage: 1 DF, BID
     Route: 048
  16. FULVESTRANT [Concomitant]
  17. IBUPROFEN [Concomitant]
  18. LASIX [Concomitant]
     Dosage: 20 MG, PRN
     Route: 048
  19. LOPRESSOR [Concomitant]
  20. ATIVAN [Concomitant]
  21. LANTUS [Concomitant]
  22. ASPIRIN [Concomitant]
  23. AMBIEN [Concomitant]
  24. FEMARA [Concomitant]
  25. HYDROCORTISONE [Concomitant]
  26. PRILOSEC [Concomitant]
     Dosage: 20 MG, QD
  27. MORPHINE [Concomitant]

REACTIONS (56)
  - HYPERTENSION [None]
  - DIASTOLIC DYSFUNCTION [None]
  - ATELECTASIS [None]
  - PULMONARY OEDEMA [None]
  - VOCAL CORD DISORDER [None]
  - HYPOKALAEMIA [None]
  - CONFUSIONAL STATE [None]
  - GAIT DISTURBANCE [None]
  - INTERVERTEBRAL DISC DEGENERATION [None]
  - INTERVERTEBRAL DISC SPACE NARROWING [None]
  - DYSPHONIA [None]
  - CONSTIPATION [None]
  - ANXIETY [None]
  - DIABETES MELLITUS [None]
  - NEOPLASM PROGRESSION [None]
  - AXILLARY MASS [None]
  - TOOTHACHE [None]
  - PATHOLOGICAL FRACTURE [None]
  - AORTIC CALCIFICATION [None]
  - INTERVERTEBRAL DISC PROTRUSION [None]
  - OSTEONECROSIS OF JAW [None]
  - GENERAL PHYSICAL HEALTH DETERIORATION [None]
  - METASTASES TO BONE [None]
  - PROTHROMBIN TIME PROLONGED [None]
  - ABSCESS [None]
  - PAIN [None]
  - DECREASED INTEREST [None]
  - COMPRESSION FRACTURE [None]
  - CYSTITIS [None]
  - BACK PAIN [None]
  - MITRAL VALVE INCOMPETENCE [None]
  - PULMONARY EMBOLISM [None]
  - DIARRHOEA [None]
  - DIZZINESS [None]
  - IMPAIRED HEALING [None]
  - ORAL DISORDER [None]
  - HYPOXIA [None]
  - DYSPNOEA [None]
  - LEUKOPENIA [None]
  - HYPOAESTHESIA [None]
  - INSOMNIA [None]
  - METASTASES TO LUNG [None]
  - SUBCUTANEOUS ABSCESS [None]
  - SPINAL OSTEOARTHRITIS [None]
  - PHARYNGITIS [None]
  - CHEST PAIN [None]
  - AORTIC VALVE INCOMPETENCE [None]
  - NEOPLASM MALIGNANT [None]
  - LUNG NEOPLASM [None]
  - OSTEOMYELITIS [None]
  - HAEMATOMA [None]
  - CARDIAC FAILURE CONGESTIVE [None]
  - PLEURAL EFFUSION [None]
  - AORTIC ARTERIOSCLEROSIS [None]
  - SINUS DISORDER [None]
  - MUSCULOSKELETAL DISCOMFORT [None]
